FAERS Safety Report 8542520-4 (Version None)
Quarter: 2012Q3

REPORT INFORMATION
  Report Type: 
  Country: None (occurrence: None)
  Receive Date: 20120726
  Receipt Date: 20110808
  Transmission Date: 20120928
  Serious: Yes (Other)
  Sender: FDA-Public Use
  Company Number: US-ASTRAZENECA-2011SE47912

PATIENT
  Age: 50 Year
  Sex: Female

DRUGS (10)
  1. BP MED [Concomitant]
  2. SIMVASTATIN [Concomitant]
  3. TEGRETOL [Concomitant]
  4. DOXEPIN [Concomitant]
  5. DILANTAN [Concomitant]
  6. METFORMIN HYDROCHLORIDE [Concomitant]
  7. SEROQUEL [Suspect]
     Dosage: 100 MG AT NIGHT AS REQUIRED
     Route: 048
  8. HALOPERIDOL [Concomitant]
  9. INSULIN [Concomitant]
  10. DOXEPIN [Concomitant]

REACTIONS (12)
  - SARCOIDOSIS [None]
  - OBSESSIVE-COMPULSIVE DISORDER [None]
  - DECREASED APPETITE [None]
  - SOMNOLENCE [None]
  - HYPERTENSION [None]
  - PANIC ATTACK [None]
  - ANXIETY [None]
  - HYPERCHOLESTEROLAEMIA [None]
  - DEPRESSION [None]
  - POST-TRAUMATIC STRESS DISORDER [None]
  - CONVULSION [None]
  - TYPE 1 DIABETES MELLITUS [None]
